FAERS Safety Report 14153409 (Version 2)
Quarter: 2018Q2

REPORT INFORMATION
  Report Type: Spontaneous
  Country: US (occurrence: US)
  Receive Date: 20171102
  Receipt Date: 20180430
  Transmission Date: 20180711
  Serious: No
  Sender: FDA-Public Use
  Company Number: US-SA-2017SA151701

PATIENT
  Age: 60 Year
  Sex: Female

DRUGS (4)
  1. PRALUENT [Suspect]
     Active Substance: ALIROCUMAB
     Indication: PRODUCT USE IN UNAPPROVED INDICATION
     Route: 058
  2. PRALUENT [Suspect]
     Active Substance: ALIROCUMAB
     Indication: PRODUCT USE IN UNAPPROVED INDICATION
     Route: 058
     Dates: start: 20170306
  3. ALIROCUMAB PREFILLED PEN [Suspect]
     Active Substance: ALIROCUMAB
     Indication: PRODUCT USE IN UNAPPROVED INDICATION
  4. ALIROCUMAB PREFILLED PEN [Suspect]
     Active Substance: ALIROCUMAB
     Indication: PRODUCT USE IN UNAPPROVED INDICATION
     Dates: start: 20170306

REACTIONS (1)
  - Sinus congestion [Unknown]

NARRATIVE: CASE EVENT DATE: 20170809
